FAERS Safety Report 7930490-9 (Version None)
Quarter: 2011Q4

REPORT INFORMATION
  Report Type: 
  Country: None (occurrence: None)
  Receive Date: 20111121
  Receipt Date: 20111107
  Transmission Date: 20120403
  Serious: Yes (Death, Hospitalization)
  Sender: FDA-Public Use
  Company Number: US-ROCHE-1011082

PATIENT

DRUGS (5)
  1. HERCEPTIN [Suspect]
     Indication: TRANSITIONAL CELL CARCINOMA
     Dosage: ON DAY1 AND 2 MG/KG ON DAYS8 AND 15 OF CYCLE1 AND DAYS 1,8 AND 15 OF ALL SUBSEQUENT CYCLES.
     Dates: start: 20021231
  2. PACLITAXEL [Suspect]
     Indication: TRANSITIONAL CELL CARCINOMA
     Dosage: ON DAY1
  3. CARBOPLATIN [Suspect]
     Indication: TRANSITIONAL CELL CARCINOMA
     Dosage: AUC5,DAY1
  4. GEMCITABINE HYDROCHLORIDE [Suspect]
     Indication: TRANSITIONAL CELL CARCINOMA
     Dosage: ON DAYS 1 AND 8.
  5. WARFARIN SODIUM [Suspect]
     Indication: PRODUCT USED FOR UNKNOWN INDICATION

REACTIONS (7)
  - DEATH [None]
  - LOWER GASTROINTESTINAL HAEMORRHAGE [None]
  - VOMITING [None]
  - BLOOD CREATININE INCREASED [None]
  - DEHYDRATION [None]
  - FEBRILE NEUTROPENIA [None]
  - DIARRHOEA [None]
